FAERS Safety Report 5469321-8 (Version None)
Quarter: 2007Q3

REPORT INFORMATION
  Report Type: 
  Country: None (occurrence: None)
  Receive Date: 20070927
  Receipt Date: 20070925
  Transmission Date: 20080115
  Serious: Yes (Life-Threatening)
  Sender: FDA-Public Use
  Company Number: JP-BRISTOL-MYERS SQUIBB COMPANY-13920905

PATIENT
  Age: 65 Year
  Sex: Female

DRUGS (4)
  1. MAXIPIME [Suspect]
     Indication: FEBRILE NEUTROPENIA
     Route: 041
  2. ENDOXAN [Suspect]
  3. EPIRUBICIN [Suspect]
  4. GRAN [Suspect]

REACTIONS (1)
  - INTERSTITIAL LUNG DISEASE [None]
